FAERS Safety Report 7912561-6 (Version None)
Quarter: 2011Q4

REPORT INFORMATION
  Report Type: 
  Country: None (occurrence: None)
  Receive Date: 20111114
  Receipt Date: 20111109
  Transmission Date: 20120403
  Serious: No
  Sender: FDA-Public Use
  Company Number: US-PFIZER INC-2011275679

PATIENT
  Sex: Male

DRUGS (6)
  1. ZOLOFT [Concomitant]
     Indication: ANXIETY
  2. CELEBREX [Concomitant]
     Indication: ARTHRALGIA
     Dosage: UNK
  3. LYRICA [Suspect]
     Indication: ANXIETY
  4. LYRICA [Suspect]
     Indication: DEPRESSION
     Dosage: 200 MG, DAILY
     Dates: start: 20100101, end: 20111106
  5. ZOLOFT [Concomitant]
     Indication: DEPRESSION
     Dosage: 300 MG,DAILY
  6. BENICAR [Concomitant]
     Indication: BLOOD PRESSURE ABNORMAL
     Dosage: 40 MG,DAILY

REACTIONS (2)
  - ANXIETY [None]
  - LIBIDO INCREASED [None]
